FAERS Safety Report 4854779-5 (Version None)
Quarter: 2005Q4

REPORT INFORMATION
  Report Type: 
  Country: None (occurrence: None)
  Receive Date: 20051215
  Receipt Date: 20051203
  Transmission Date: 20060501
  Serious: Yes (Other)
  Sender: FDA-Public Use
  Company Number: PHNU2005DE03994

PATIENT
  Age: 82 Year
  Sex: Female

DRUGS (4)
  1. OSYROL-LASIX [Suspect]
  2. NORVASC [Suspect]
  3. ASPIRIN [Concomitant]
  4. DIOVAN HCT [Suspect]
     Indication: MALIGNANT HYPERTENSION
     Dates: start: 20030101

REACTIONS (4)
  - ACTIVITIES OF DAILY LIVING IMPAIRED [None]
  - BEDRIDDEN [None]
  - MENIERE'S DISEASE [None]
  - NAUSEA [None]
